FAERS Safety Report 4363057-2 (Version None)
Quarter: 2004Q2

REPORT INFORMATION
  Report Type: 
  Country: None (occurrence: None)
  Receive Date: 20040521
  Receipt Date: 20040521
  Transmission Date: 20050107
  Serious: No
  Sender: FDA-Public Use
  Company Number: None

PATIENT
  Age: 63 Year
  Sex: Male

DRUGS (2)
  1. ENDOCET 7.5 /325 [Suspect]
     Dosage: TAB
  2. ENDOCET 7.5/500 [Suspect]
     Dosage: TAB

REACTIONS (1)
  - MEDICATION ERROR [None]
